FAERS Safety Report 12346201 (Version 1)
Quarter: 2016Q2

REPORT INFORMATION
  Report Type: Spontaneous
  Country: US (occurrence: None)
  Receive Date: 20160506
  Receipt Date: 20160506
  Transmission Date: 20160815
  Serious: No
  Sender: FDA-Public Use
  Company Number: None

PATIENT
  Age: 30 Year
  Sex: Female
  Weight: 68.04 kg

DRUGS (3)
  1. MIRTAZAPINE. [Concomitant]
     Active Substance: MIRTAZAPINE
  2. JUNEL FE (BIRTH CONTROL) [Concomitant]
  3. SUBOXONE [Suspect]
     Active Substance: BUPRENORPHINE HYDROCHLORIDE\NALOXONE HYDROCHLORIDE
     Indication: DRUG DEPENDENCE
     Dosage: 3 FILMS IN THE MORNING TAKEN UNDER THE TONGUE
     Dates: start: 20151201, end: 20160505

REACTIONS (2)
  - Application site pain [None]
  - Application site ulcer [None]

NARRATIVE: CASE EVENT DATE: 20160502
